FAERS Safety Report 9160375 (Version 2)
Quarter: 2013Q1

REPORT INFORMATION
  Report Type: Spontaneous
  Country: JP (occurrence: JP)
  Receive Date: 20130313
  Receipt Date: 20130325
  Transmission Date: 20140127
  Serious: Yes (Hospitalization, Disabling)
  Sender: FDA-Public Use
  Company Number: JP-PFIZER INC-2013065973

PATIENT
  Age: 78 Year
  Sex: Female
  Weight: 58 kg

DRUGS (5)
  1. ZITHROMAC SR [Suspect]
     Indication: INFECTION PROPHYLAXIS
     Dosage: 2 G, SINGLE
     Route: 048
     Dates: start: 20130120, end: 20130120
  2. KYORIN [Suspect]
     Indication: PYREXIA
     Dosage: UNK
     Route: 048
     Dates: start: 20130120, end: 20130121
  3. MUCODYNE [Suspect]
     Indication: SPUTUM RETENTION
     Dosage: UNK
     Route: 048
     Dates: start: 20130120, end: 20130121
  4. MEDICON [Suspect]
     Indication: COUGH
     Dosage: UNK
     Route: 048
     Dates: start: 20130120, end: 20130121
  5. RAPIACTA [Suspect]
     Indication: INFLUENZA
     Dosage: 300 MG, 1X/DAY
     Route: 041
     Dates: start: 20130120, end: 20130120

REACTIONS (3)
  - Renal failure acute [Not Recovered/Not Resolved]
  - Pneumonia bacterial [Recovered/Resolved]
  - Condition aggravated [None]
